FAERS Safety Report 14406494 (Version 2)
Quarter: 2020Q1

REPORT INFORMATION
  Report Type: Not Available
  Country: US (occurrence: US)
  Receive Date: 20180118
  Receipt Date: 20200220
  Transmission Date: 20200409
  Serious: No
  Sender: FDA-Public Use
  Company Number: US-NEUROCRINE BIOSCIENCES INC.-2017NBI01981

PATIENT
  Sex: Female

DRUGS (3)
  1. INGREZZA [Suspect]
     Active Substance: VALBENAZINE
     Indication: TARDIVE DYSKINESIA
     Route: 048
     Dates: start: 20171107, end: 20171114
  2. INGREZZA [Suspect]
     Active Substance: VALBENAZINE
     Route: 048
     Dates: start: 2017, end: 2017
  3. INGREZZA [Suspect]
     Active Substance: VALBENAZINE
     Dosage: 2 X 40 MG CAPSULE
     Route: 048
     Dates: start: 2017

REACTIONS (4)
  - Renal impairment [Unknown]
  - Fatigue [Not Recovered/Not Resolved]
  - Therapeutic product effect decreased [None]
  - Renal function test abnormal [Not Recovered/Not Resolved]

NARRATIVE: CASE EVENT DATE: 2017
